FAERS Safety Report 6530611-9 (Version None)
Quarter: 2010Q1

REPORT INFORMATION
  Report Type: 
  Country: None (occurrence: None)
  Receive Date: 20100108
  Receipt Date: 20091231
  Transmission Date: 20100710
  Serious: Yes (Hospitalization, Other)
  Sender: FDA-Public Use
  Company Number: US-BIOGENIDEC-2009BI034693

PATIENT
  Age: 54 Year
  Sex: Female
  Weight: 54 kg

DRUGS (4)
  1. AVONEX [Suspect]
     Indication: MULTIPLE SCLEROSIS
     Route: 030
     Dates: start: 19980101
  2. AVONEX [Suspect]
     Route: 030
     Dates: end: 20090901
  3. AVONEX [Suspect]
     Route: 030
     Dates: start: 20091110
  4. DEPAKOTE [Concomitant]
     Indication: CONVULSION
     Route: 048

REACTIONS (9)
  - BLOOD SODIUM DECREASED [None]
  - CONVULSION [None]
  - EXCORIATION [None]
  - HYPERTENSION [None]
  - INFECTED SKIN ULCER [None]
  - MEDICATION ERROR [None]
  - MEMORY IMPAIRMENT [None]
  - URINARY TRACT INFECTION [None]
  - VISUAL IMPAIRMENT [None]
